FAERS Safety Report 14901789 (Version 1)
Quarter: 2018Q2

REPORT INFORMATION
  Report Type: Report from Study
  Country: ES (occurrence: ES)
  Receive Date: 20180516
  Receipt Date: 20180516
  Transmission Date: 20180711
  Serious: Yes (Hospitalization)
  Sender: FDA-Public Use
  Company Number: ES-PFIZER INC-2018195772

PATIENT
  Age: 10 Year
  Sex: Female

DRUGS (6)
  1. FLUCONAZOLE. [Suspect]
     Active Substance: FLUCONAZOLE
     Dosage: 40 MG/ML: 4 ML EVERY 24 HOURS
     Route: 048
     Dates: start: 20170224
  2. METHOTREXATE SODIUM. [Suspect]
     Active Substance: METHOTREXATE SODIUM
     Dosage: 4 TABLETS OF 2.5 MG EVERY 7 DAYS
     Route: 048
     Dates: start: 20170224, end: 20170727
  3. SEPTRIN [Suspect]
     Active Substance: SULFAMETHOXAZOLE\TRIMETHOPRIM
     Dosage: 1-0-1 ON FRIDAYS-SATURDAYS-SUNDAYS
     Route: 048
     Dates: start: 20170224
  4. MOVICOL PEDIATRICO [Concomitant]
     Dosage: 1 SACHET, 3X/DAY
     Route: 048
     Dates: start: 20170224
  5. ESOMEPRAZOLE [Concomitant]
     Active Substance: ESOMEPRAZOLE
     Dosage: 20 MG, 2X/DAY
     Route: 048
     Dates: start: 20170224
  6. MERCAPTOPURINE. [Suspect]
     Active Substance: MERCAPTOPURINE
     Indication: ACUTE LYMPHOCYTIC LEUKAEMIA
     Dosage: SUSPENSION OF 20 MG/ML: 2 ML EVERY 24 HOURS
     Route: 048
     Dates: start: 20170224, end: 20170727

REACTIONS (2)
  - Enterocolitis [Recovered/Resolved]
  - Hepatitis [Recovered/Resolved]

NARRATIVE: CASE EVENT DATE: 20170727
